FAERS Safety Report 17100954 (Version 2)
Quarter: 2020Q3

REPORT INFORMATION
  Report Type: Spontaneous
  Country: US (occurrence: US)
  Receive Date: 20191202
  Receipt Date: 20200728
  Transmission Date: 20201102
  Serious: No
  Sender: FDA-Public Use
  Company Number: US-SA-2019SA329722

PATIENT

DRUGS (1)
  1. DUPIXENT [Suspect]
     Active Substance: DUPILUMAB
     Indication: ASTHMA
     Dosage: 300 MG, QOW
     Route: 058
     Dates: start: 20190601

REACTIONS (5)
  - Lip erythema [Unknown]
  - Eye pain [Unknown]
  - Lip dry [Unknown]
  - Eye pruritus [Unknown]
  - Eyelid exfoliation [Unknown]

NARRATIVE: CASE EVENT DATE: 2019
